FAERS Safety Report 9126551 (Version 3)
Quarter: 2017Q3

REPORT INFORMATION
  Report Type: Report from Study
  Country: GB (occurrence: GB)
  Receive Date: 20130121
  Receipt Date: 20170725
  Transmission Date: 20171128
  Serious: Yes (Hospitalization, Other)
  Sender: FDA-Public Use
  Company Number: GB-BAXTER-2013BAX001894

PATIENT
  Age: 16 Year
  Sex: Female
  Weight: 38.8 kg

DRUGS (74)
  1. IFOSFAMIDE INJECTION 2G [Suspect]
     Active Substance: IFOSFAMIDE
     Route: 065
     Dates: start: 20121109
  2. APREPITANT. [Suspect]
     Active Substance: APREPITANT
     Indication: PROPHYLAXIS OF NAUSEA AND VOMITING
     Dosage: CYCLE 3 SEQUENCE 1
     Route: 048
     Dates: start: 20121107, end: 20121107
  3. APREPITANT. [Suspect]
     Active Substance: APREPITANT
     Dosage: CYCLE 3 SEQUENCE 2
     Route: 048
     Dates: start: 20121108, end: 20121108
  4. APREPITANT. [Suspect]
     Active Substance: APREPITANT
     Dosage: CYCLE 2 SEQUENCE 1
     Route: 048
     Dates: start: 20121018, end: 20121018
  5. ONDANSETRON [Suspect]
     Active Substance: ONDANSETRON
     Indication: PROPHYLAXIS OF NAUSEA AND VOMITING
     Route: 042
     Dates: start: 20121007, end: 20121007
  6. ONDANSETRON [Suspect]
     Active Substance: ONDANSETRON
     Route: 065
     Dates: start: 20120925, end: 20120925
  7. ONDANSETRON [Suspect]
     Active Substance: ONDANSETRON
     Route: 065
     Dates: start: 20120927, end: 20120927
  8. CODEINE [Concomitant]
     Active Substance: CODEINE
     Indication: ANALGESIC THERAPY
     Route: 048
     Dates: start: 20121005, end: 20121005
  9. CYCLIZINE [Concomitant]
     Active Substance: CYCLIZINE
     Indication: ANTIEMETIC SUPPORTIVE CARE
     Route: 048
     Dates: start: 20121017, end: 20121017
  10. CYCLIZINE [Concomitant]
     Active Substance: CYCLIZINE
     Indication: MUCOSAL INFLAMMATION
     Route: 048
     Dates: start: 20120923, end: 20120923
  11. FENTANYL. [Concomitant]
     Active Substance: FENTANYL
     Indication: PAIN
     Dosage: DOSAGE FORM: UNSPECIFIED
     Route: 042
     Dates: start: 20121030
  12. GRANULOCYTE COLONY STIMULATING FACTOR [Concomitant]
     Active Substance: GRANULOCYTE COLONY-STIMULATING FACTOR NOS
     Indication: PRODUCT USED FOR UNKNOWN INDICATION
     Route: 065
  13. OXYCODONE [Concomitant]
     Active Substance: OXYCODONE
     Indication: PROCTITIS
     Route: 065
     Dates: start: 20121212
  14. IFOSFAMIDE INJECTION 2G [Suspect]
     Active Substance: IFOSFAMIDE
     Indication: NEOPLASM MALIGNANT
     Dosage: DOSAGE FORM: INJECTION
     Route: 042
     Dates: start: 20121017, end: 20121019
  15. APREPITANT. [Suspect]
     Active Substance: APREPITANT
     Dosage: CYCLE 2. SEQUENCE 1
     Route: 048
     Dates: start: 20121019, end: 20121019
  16. DOXORUBICIN HYDROCHLORIDE. [Suspect]
     Active Substance: DOXORUBICIN HYDROCHLORIDE
     Route: 042
     Dates: start: 20120922, end: 20120923
  17. ONDANSETRON [Suspect]
     Active Substance: ONDANSETRON
     Route: 065
     Dates: start: 20121019, end: 20121019
  18. DEXAMETHASONE. [Suspect]
     Active Substance: DEXAMETHASONE
     Route: 042
     Dates: start: 20120922, end: 20120922
  19. MACROGOL [Concomitant]
     Active Substance: POLYETHYLENE GLYCOLS
     Indication: CONSTIPATION
     Route: 048
     Dates: start: 20120830, end: 201209
  20. NORETHINDRONE. [Concomitant]
     Active Substance: NORETHINDRONE
     Indication: MENSTRUAL DISORDER
     Route: 048
     Dates: start: 20120903
  21. PARACETAMOL [Concomitant]
     Active Substance: ACETAMINOPHEN
     Indication: HEADACHE
     Route: 065
  22. DOCUSATE SODIUM. [Concomitant]
     Active Substance: DOCUSATE SODIUM
     Indication: PROCTALGIA
     Route: 065
  23. APREPITANT. [Suspect]
     Active Substance: APREPITANT
     Route: 065
     Dates: start: 20121222
  24. DOXORUBICIN HYDROCHLORIDE. [Suspect]
     Active Substance: DOXORUBICIN HYDROCHLORIDE
     Route: 065
     Dates: start: 20121128
  25. ONDANSETRON [Suspect]
     Active Substance: ONDANSETRON
     Route: 065
     Dates: start: 20121018, end: 20121018
  26. ONDANSETRON [Suspect]
     Active Substance: ONDANSETRON
     Route: 042
     Dates: start: 20120924, end: 20120924
  27. BUSCOPAN [Concomitant]
     Active Substance: BUTYLSCOPOLAMINE BROMIDE
     Indication: PRODUCT USED FOR UNKNOWN INDICATION
     Route: 065
     Dates: start: 20121005, end: 20121008
  28. CIPROFLOXACIN. [Concomitant]
     Active Substance: CIPROFLOXACIN
     Indication: PERIORBITAL CELLULITIS
  29. BLOOD, WHOLE [Concomitant]
     Active Substance: WHOLE BLOOD
     Indication: FULL BLOOD COUNT ABNORMAL
     Route: 065
  30. MESNA INJECTION [Suspect]
     Active Substance: MESNA
     Indication: INFECTION PROPHYLAXIS
     Dosage: DOSAGE FORM : NOT SPECIFIED
     Route: 042
     Dates: start: 20121017, end: 20121019
  31. IFOSFAMIDE INJECTION 2G [Suspect]
     Active Substance: IFOSFAMIDE
     Route: 042
     Dates: start: 20121107
  32. APREPITANT. [Suspect]
     Active Substance: APREPITANT
     Dosage: ON DAY ONE, 60 MIN PRIOR CHEMOTHJERAPY CYCLE 1 SEQUENCE 1
     Route: 048
     Dates: start: 20120921, end: 20120921
  33. APREPITANT. [Suspect]
     Active Substance: APREPITANT
     Dosage: ON MORNING OF DAY 2 AND DAY 3 CYCLE 1 SEQUENCE 2
     Route: 048
     Dates: start: 20120922, end: 20120922
  34. APREPITANT. [Suspect]
     Active Substance: APREPITANT
     Route: 065
     Dates: start: 20121221
  35. ONDANSETRON [Suspect]
     Active Substance: ONDANSETRON
     Route: 042
     Dates: start: 20121220
  36. DEXAMETHASONE. [Suspect]
     Active Substance: DEXAMETHASONE
     Indication: PROPHYLAXIS OF NAUSEA AND VOMITING
     Route: 042
     Dates: start: 20120921, end: 20120921
  37. DEXAMETHASONE. [Suspect]
     Active Substance: DEXAMETHASONE
     Route: 042
     Dates: start: 20120923, end: 20120923
  38. CALCIUM CARBONATE. [Concomitant]
     Active Substance: CALCIUM CARBONATE
     Indication: PRODUCT USED FOR UNKNOWN INDICATION
     Route: 065
     Dates: start: 20121005, end: 20121009
  39. CIPROFLOXACIN. [Concomitant]
     Active Substance: CIPROFLOXACIN
     Indication: MUCOSAL INFLAMMATION
     Dosage: DOSAGE FORM : UNSPECIFIED
     Route: 048
     Dates: start: 20121030, end: 201211
  40. CODEINE PHOSPHATE [Concomitant]
     Active Substance: CODEINE PHOSPHATE
     Route: 048
     Dates: start: 20120830
  41. HYPROMELLOSE [Concomitant]
     Active Substance: HYPROMELLOSES
     Indication: DRY EYE
     Route: 047
     Dates: start: 20121019
  42. MESNA INJECTION [Suspect]
     Active Substance: MESNA
     Dosage: DOSAGE FORM : INJECTION
     Route: 042
     Dates: start: 20120921, end: 20120924
  43. IFOSFAMIDE INJECTION 2G [Suspect]
     Active Substance: IFOSFAMIDE
     Route: 065
     Dates: start: 20121128
  44. APREPITANT. [Suspect]
     Active Substance: APREPITANT
     Dosage: CYCLE 4, SEQUENCE 1
     Route: 048
     Dates: start: 20121129, end: 20121129
  45. DOXORUBICIN HYDROCHLORIDE. [Suspect]
     Active Substance: DOXORUBICIN HYDROCHLORIDE
     Indication: CHEMOTHERAPY
     Route: 042
     Dates: start: 20121017, end: 20121018
  46. DOXORUBICIN HYDROCHLORIDE. [Suspect]
     Active Substance: DOXORUBICIN HYDROCHLORIDE
     Route: 042
     Dates: start: 20121108, end: 20121108
  47. DOXORUBICIN HYDROCHLORIDE. [Suspect]
     Active Substance: DOXORUBICIN HYDROCHLORIDE
     Route: 065
     Dates: start: 20121129
  48. ONDANSETRON [Suspect]
     Active Substance: ONDANSETRON
     Route: 065
     Dates: start: 20121017, end: 20121017
  49. ONDANSETRON [Suspect]
     Active Substance: ONDANSETRON
     Dosage: INJECTION
     Route: 042
     Dates: start: 20121222
  50. DEXAMETHASONE. [Suspect]
     Active Substance: DEXAMETHASONE
     Route: 042
     Dates: start: 20120924, end: 20120924
  51. CO-AMOXICLAV [Concomitant]
     Active Substance: AMOXICILLIN\CLAVULANIC ACID
     Indication: MUCOSAL INFLAMMATION
  52. CYCLIZINE [Concomitant]
     Active Substance: CYCLIZINE
     Indication: NAUSEA
  53. PARACETAMOL [Concomitant]
     Active Substance: ACETAMINOPHEN
     Indication: ANALGESIC THERAPY
     Route: 048
     Dates: start: 20121005, end: 20121006
  54. IFOSFAMIDE INJECTION 2G [Suspect]
     Active Substance: IFOSFAMIDE
     Indication: CHEMOTHERAPY
     Route: 042
     Dates: start: 20120921, end: 20120923
  55. APREPITANT. [Suspect]
     Active Substance: APREPITANT
     Dosage: CYCLE 1, SEQUENCE 3
     Route: 048
     Dates: start: 20120923, end: 20120923
  56. APREPITANT. [Suspect]
     Active Substance: APREPITANT
     Route: 048
     Dates: start: 20121219
  57. APREPITANT. [Suspect]
     Active Substance: APREPITANT
     Route: 065
     Dates: start: 20121220
  58. ONDANSETRON [Suspect]
     Active Substance: ONDANSETRON
     Dosage: INJECTION
     Route: 042
     Dates: start: 20121219
  59. HEPARIN [Concomitant]
     Active Substance: HEPARIN SODIUM
     Indication: ANTICOAGULANT THERAPY
     Dosage: INFUSION
     Route: 042
     Dates: start: 20120914
  60. TEICOPLANIN [Concomitant]
     Active Substance: TEICOPLANIN
     Indication: DEVICE RELATED INFECTION
     Route: 042
     Dates: start: 20120815, end: 20120920
  61. APREPITANT. [Suspect]
     Active Substance: APREPITANT
     Dosage: CYCLE 4, SEQUENCE 1
     Route: 048
     Dates: start: 20121128, end: 20121128
  62. ONDANSETRON [Suspect]
     Active Substance: ONDANSETRON
     Route: 065
     Dates: start: 20120926, end: 20120927
  63. CODEINE PHOSPHATE [Concomitant]
     Active Substance: CODEINE PHOSPHATE
     Indication: ANALGESIC THERAPY
     Route: 048
     Dates: start: 20121005, end: 20121005
  64. SODIUM CHLORIDE. [Concomitant]
     Active Substance: SODIUM CHLORIDE
     Indication: FLUID IMBALANCE
     Route: 065
  65. IFOSFAMIDE INJECTION 2G [Suspect]
     Active Substance: IFOSFAMIDE
     Route: 065
     Dates: start: 20121130
  66. APREPITANT. [Suspect]
     Active Substance: APREPITANT
     Dosage: CYCLE 2 SEQUENCE 1
     Route: 048
     Dates: start: 20121109, end: 20121109
  67. APREPITANT. [Suspect]
     Active Substance: APREPITANT
     Dosage: CYCLE 1
     Route: 048
     Dates: start: 20121017, end: 20121017
  68. ONDANSETRON [Suspect]
     Active Substance: ONDANSETRON
     Route: 042
     Dates: start: 20120921, end: 20120924
  69. ONDANSETRON [Suspect]
     Active Substance: ONDANSETRON
     Dosage: INJECTION
     Route: 042
     Dates: start: 20121221
  70. CO-AMOXICLAV [Concomitant]
     Active Substance: AMOXICILLIN\CLAVULANIC ACID
     Indication: INFECTION
     Route: 048
     Dates: start: 20121030, end: 201211
  71. HEPARIN [Concomitant]
     Active Substance: HEPARIN SODIUM
     Dosage: DOSAGE FORM :UNKNOWN
     Route: 065
     Dates: start: 20120914
  72. RED BLOOD CELLS [Concomitant]
     Active Substance: HUMAN RED BLOOD CELL
     Indication: HAEMOGLOBIN DECREASED
     Dosage: DOSAGE FORM: NOT SPECIFIED
     Route: 042
     Dates: start: 20120924, end: 20120924
  73. DEXTROSE. [Concomitant]
     Active Substance: DEXTROSE
     Indication: FLUID IMBALANCE
     Route: 065
  74. SODIUM PICOSULFATE [Concomitant]
     Active Substance: SODIUM PICOSULFATE
     Indication: CONSTIPATION
     Route: 065

REACTIONS (12)
  - Vascular access complication [Recovered/Resolved]
  - Febrile neutropenia [Recovered/Resolved]
  - Constipation [Recovered/Resolved]
  - Febrile neutropenia [Recovered/Resolved]
  - Periorbital cellulitis [Recovered/Resolved]
  - Febrile neutropenia [Recovered/Resolved]
  - Haemoglobin decreased [Not Recovered/Not Resolved]
  - Abdominal pain [Recovered/Resolved]
  - Complication associated with device [Unknown]
  - Vena cava thrombosis [Not Recovered/Not Resolved]
  - Diarrhoea [Recovered/Resolved]
  - Mucosal inflammation [Recovered/Resolved]

NARRATIVE: CASE EVENT DATE: 20121004
